FAERS Safety Report 4672854-5 (Version None)
Quarter: 2005Q2

REPORT INFORMATION
  Report Type: 
  Country: None (occurrence: None)
  Receive Date: 20050523
  Receipt Date: 20050506
  Transmission Date: 20051028
  Serious: Yes (Life-Threatening, Hospitalization)
  Sender: FDA-Public Use
  Company Number: CAR 2005-008

PATIENT
  Age: 59 Year
  Sex: Male

DRUGS (3)
  1. SUCRALFATE [Suspect]
     Indication: PROPHYLAXIS AGAINST GASTROINTESTINAL ULCER
     Dosage: 4 GRAMS CRUSHED NG
     Dates: start: 20050425, end: 20050505
  2. TPN/LIPIDS [Concomitant]
  3. AMIODARONE [Concomitant]

REACTIONS (4)
  - CARDIOMEGALY [None]
  - DIALYSIS [None]
  - INCORRECT ROUTE OF DRUG ADMINISTRATION [None]
  - PULMONARY CONGESTION [None]
